FAERS Safety Report 6223276-7 (Version None)
Quarter: 2009Q2

REPORT INFORMATION
  Report Type: 
  Country: None (occurrence: None)
  Receive Date: 20090611
  Receipt Date: 20090603
  Transmission Date: 20091009
  Serious: Yes (Other)
  Sender: FDA-Public Use
  Company Number: US-ELI_LILLY_AND_COMPANY-US200904006651

PATIENT
  Age: 53 Year
  Sex: Female
  Weight: 115.65 kg

DRUGS (6)
  1. BYETTA [Suspect]
     Indication: DIABETES MELLITUS
     Dosage: 5 UG, 2/D
     Route: 058
     Dates: start: 20070201
  2. BYETTA [Suspect]
     Dosage: 10 UG, 2/D
     Route: 058
     Dates: end: 20090501
  3. CYMBALTA [Concomitant]
     Indication: NEUROPATHY PERIPHERAL
     Dosage: 60 MG, UNK
     Dates: start: 20090101
  4. METFORMIN [Concomitant]
     Indication: DIABETES MELLITUS
     Dosage: 1000 MG, 2/D
     Dates: start: 20070101
  5. EFFEXOR [Concomitant]
     Indication: DEPRESSION
     Dosage: 150 MG, UNK
     Dates: start: 20070101, end: 20090401
  6. DIURETICS [Concomitant]

REACTIONS (2)
  - PANCREATITIS [None]
  - WEIGHT DECREASED [None]
